FAERS Safety Report 5103251-6 (Version None)
Quarter: 2006Q3

REPORT INFORMATION
  Report Type: 
  Country: None (occurrence: None)
  Receive Date: 20060913
  Receipt Date: 20060907
  Transmission Date: 20061208
  Serious: Yes (Hospitalization)
  Sender: FDA-Public Use
  Company Number: PHRM2006FR02500

PATIENT
  Age: 49 Year
  Sex: Male
  Weight: 45 kg

DRUGS (4)
  1. LAMICTAL [Concomitant]
     Dosage: 2 DF, QD
     Route: 048
  2. RIVOTRIL [Concomitant]
     Route: 048
  3. TEGRETOL [Suspect]
     Indication: EPILEPSY
     Dosage: 200 MG, TID
     Route: 048
  4. TEGRETOL [Suspect]
     Dosage: 200 MG, BID
     Route: 048

REACTIONS (6)
  - ANTICONVULSANT DRUG LEVEL ABOVE THERAPEUTIC [None]
  - DIPLOPIA [None]
  - EPILEPSY [None]
  - MALAISE [None]
  - MONOPLEGIA [None]
  - TINNITUS [None]
